FAERS Safety Report 16584037 (Version 1)
Quarter: 2019Q3

REPORT INFORMATION
  Report Type: Spontaneous
  Country: US (occurrence: US)
  Receive Date: 20190716
  Receipt Date: 20190716
  Transmission Date: 20191004
  Serious: Yes (Other)
  Sender: FDA-Public Use
  Company Number: None

PATIENT
  Sex: Female
  Weight: 67.5 kg

DRUGS (3)
  1. OFLOXACIN OPHTHALMIC [Suspect]
     Active Substance: OFLOXACIN
     Dates: start: 20190610, end: 20190701
  2. KETOROLAC [Suspect]
     Active Substance: KETOROLAC TROMETHAMINE
     Indication: INFECTION PROPHYLAXIS
     Route: 047
     Dates: start: 20190610, end: 20190714
  3. PREDNISOLONE. [Suspect]
     Active Substance: PREDNISOLONE
     Indication: INFECTION PROPHYLAXIS
     Route: 047
     Dates: start: 20190610, end: 20190714

REACTIONS (4)
  - Lethargy [None]
  - Urticaria [None]
  - Nausea [None]
  - Irritability [None]

NARRATIVE: CASE EVENT DATE: 20190714
